FAERS Safety Report 26168346 (Version 1)
Quarter: 2025Q4

REPORT INFORMATION
  Report Type: Spontaneous
  Country: GB (occurrence: GB)
  Receive Date: 20251217
  Receipt Date: 20251217
  Transmission Date: 20260118
  Serious: Yes (Other)
  Sender: RANBAXY
  Company Number: GB-SUN PHARMACEUTICAL INDUSTRIES LTD-2025RR-541704

PATIENT
  Age: 3 Decade
  Sex: Female

DRUGS (2)
  1. CODEINE [Suspect]
     Active Substance: CODEINE
     Indication: Emotional disorder
     Dosage: 30 MILLIGRAM, DAILY, 20 TABLETS OF CODEINE 30MG PER DAY
     Route: 065
  2. CITALOPRAM [Suspect]
     Active Substance: CITALOPRAM
     Indication: Product used for unknown indication
     Dosage: 20 MILLIGRAM, DAILY, 20MG OF CITALOPRAM A DAY
     Route: 065

REACTIONS (5)
  - Drug dependence [Recovered/Resolved]
  - Hallucination, visual [Recovered/Resolved]
  - Tremor [Recovered/Resolved]
  - Delusion [Recovered/Resolved]
  - Treatment noncompliance [Recovered/Resolved]
